FAERS Safety Report 7204264-0 (Version None)
Quarter: 2010Q4

REPORT INFORMATION
  Report Type: 
  Country: None (occurrence: None)
  Receive Date: 20101230
  Receipt Date: 20101216
  Transmission Date: 20110411
  Serious: Yes (Death)
  Sender: FDA-Public Use
  Company Number: IT-ROCHE-748611

PATIENT
  Sex: Female

DRUGS (11)
  1. ROACTEMRA [Suspect]
     Indication: RHEUMATOID ARTHRITIS
     Route: 042
     Dates: start: 20100427, end: 20101028
  2. ANTRA [Suspect]
     Indication: PROPHYLAXIS
     Dosage: ROUTE: OS
     Route: 050
     Dates: start: 20101002, end: 20101213
  3. DELTACORTENE [Suspect]
     Indication: RHEUMATOID ARTHRITIS
     Route: 050
     Dates: start: 20100727, end: 20100727
  4. SEACOR [Concomitant]
  5. NERIXIA [Concomitant]
     Route: 030
  6. CALCIUM SANDOZ [Concomitant]
  7. DIBASE [Concomitant]
  8. HYDROXYCHLOROQUINE SULFATE [Concomitant]
     Dates: start: 20010101, end: 20100101
  9. METHOTREXATE [Concomitant]
     Dates: start: 20010101, end: 20100101
  10. VITAMIN D3 [Concomitant]
     Dates: start: 20010101, end: 20100101
  11. PROTON PUMP INHIBITOR [Concomitant]
     Dates: start: 20010101, end: 20100101

REACTIONS (4)
  - ABDOMINAL PAIN [None]
  - ABSCESS [None]
  - HOSPITALISATION [None]
  - LAPAROTOMY [None]
